FAERS Safety Report 10070133 (Version 2)
Quarter: 2014Q2

REPORT INFORMATION
  Report Type: Spontaneous
  Country: US (occurrence: US)
  Receive Date: 20140410
  Receipt Date: 20140410
  Transmission Date: 20141212
  Serious: Yes (Hospitalization)
  Sender: FDA-Public Use
  Company Number: US-ALEXION PHARMACEUTICALS INC.-A200900241

PATIENT
  Age: 29 Year
  Sex: Female

DRUGS (10)
  1. SOLIRIS [Suspect]
     Indication: PAROXYSMAL NOCTURNAL HAEMOGLOBINURIA
     Dosage: 600 MG, QWK X4
     Route: 042
     Dates: start: 20081106
  2. SOLIRIS [Suspect]
     Dosage: 900 MG, Q2WK
     Route: 042
  3. FOLIC ACID [Concomitant]
     Indication: PAROXYSMAL NOCTURNAL HAEMOGLOBINURIA
     Dosage: UNK
     Route: 048
  4. IRON [Concomitant]
     Dosage: UNK
     Route: 048
  5. PREDNISONE [Concomitant]
     Indication: PAROXYSMAL NOCTURNAL HAEMOGLOBINURIA
     Dosage: UNK
     Route: 048
  6. ACYCLOVIR                          /00587301/ [Concomitant]
     Dosage: UNK
     Route: 048
  7. PROTONIX                           /01263201/ [Concomitant]
     Dosage: UNK
     Route: 048
  8. BACTRIM                            /00086101/ [Concomitant]
     Indication: PRODUCT USED FOR UNKNOWN INDICATION
     Dosage: UNK
     Route: 048
  9. CYCLOSPORIN [Concomitant]
     Indication: PRODUCT USED FOR UNKNOWN INDICATION
     Dosage: UNK
     Route: 048
  10. VITAMINS                           /90003601/ [Concomitant]
     Dosage: UNK
     Route: 048

REACTIONS (2)
  - Aplastic anaemia [Unknown]
  - Blood test abnormal [Recovered/Resolved]
